FAERS Safety Report 18883813 (Version 2)
Quarter: 2021Q1

REPORT INFORMATION
  Report Type: Spontaneous
  Country: US (occurrence: US)
  Receive Date: 20210211
  Receipt Date: 20210225
  Transmission Date: 20210420
  Serious: No
  Sender: FDA-Public Use
  Company Number: US-MERZ PHARMACEUTICALS GMBH-21-00048

PATIENT
  Age: 4 Decade
  Sex: Female

DRUGS (4)
  1. BOTULINUM TOXIN TYPE A [Concomitant]
     Active Substance: BOTULINUM TOXIN TYPE A
     Indication: SKIN WRINKLING
  2. XEOMIN [Suspect]
     Active Substance: INCOBOTULINUMTOXINA
     Indication: SKIN WRINKLING
  3. XEOMIN [Suspect]
     Active Substance: INCOBOTULINUMTOXINA
     Indication: SKIN COSMETIC PROCEDURE
     Route: 030
     Dates: start: 20210104, end: 20210104
  4. XEOMIN [Suspect]
     Active Substance: INCOBOTULINUMTOXINA
     Indication: SKIN WRINKLING

REACTIONS (4)
  - Feeling of body temperature change [Recovering/Resolving]
  - Injection site paraesthesia [Recovering/Resolving]
  - Off label use [Unknown]
  - Injection site hypoaesthesia [Recovering/Resolving]

NARRATIVE: CASE EVENT DATE: 20210104
